FAERS Safety Report 12743473 (Version 5)
Quarter: 2017Q1

REPORT INFORMATION
  Report Type: Report from Study
  Country: AR (occurrence: AR)
  Receive Date: 20160914
  Receipt Date: 20170203
  Transmission Date: 20170428
  Serious: Yes (Death, Hospitalization, Other)
  Sender: FDA-Public Use
  Company Number: PHHY2016AR124316

PATIENT
  Age: 33 Year
  Sex: Male

DRUGS (4)
  1. TAFINLAR [Suspect]
     Active Substance: DABRAFENIB MESYLATE
     Indication: MALIGNANT MELANOMA
     Dosage: 3 DF BID (3 IN THE MORNING AND 3 IN THE AFTERNOON)
     Route: 065
     Dates: start: 20160715
  2. MEKINIST [Suspect]
     Active Substance: TRAMETINIB DIMETHYL SULFOXIDE
     Indication: PERITONEAL HAEMORRHAGE
  3. MEKINIST [Suspect]
     Active Substance: TRAMETINIB DIMETHYL SULFOXIDE
     Indication: MALIGNANT MELANOMA
     Dosage: 1 DF, QD (IN THE MORNING)
     Route: 065
     Dates: start: 20160715
  4. TAFINLAR [Suspect]
     Active Substance: DABRAFENIB MESYLATE
     Indication: PERITONEAL HAEMORRHAGE

REACTIONS (10)
  - Feeling abnormal [Not Recovered/Not Resolved]
  - Death [Fatal]
  - Pyrexia [Recovering/Resolving]
  - Cough [Not Recovered/Not Resolved]
  - Weight decreased [Not Recovered/Not Resolved]
  - Immunosuppression [Recovering/Resolving]
  - Decreased appetite [Recovering/Resolving]
  - Hypotension [Not Recovered/Not Resolved]
  - Pneumonia [Recovering/Resolving]
  - Catarrh [Not Recovered/Not Resolved]

NARRATIVE: CASE EVENT DATE: 20160828
